FAERS Safety Report 4603028-1 (Version None)
Quarter: 2005Q1

REPORT INFORMATION
  Report Type: 
  Country: None (occurrence: None)
  Receive Date: 20050309
  Receipt Date: 20050303
  Transmission Date: 20050727
  Serious: Yes (Hospitalization)
  Sender: FDA-Public Use
  Company Number: PHBS2005SE03204

PATIENT
  Age: 90 Year
  Sex: Male

DRUGS (5)
  1. ESIDRIX [Suspect]
     Indication: HYPERTENSION
     Dosage: 25 MG, QD
     Route: 048
     Dates: start: 20000101, end: 20041107
  2. MINIRIN [Suspect]
     Route: 048
     Dates: start: 20030101, end: 20041107
  3. ZOCORD [Concomitant]
  4. ASPIRIN [Concomitant]
  5. IMOVANE [Concomitant]

REACTIONS (6)
  - DIZZINESS [None]
  - HYPOKALAEMIA [None]
  - HYPONATRAEMIA [None]
  - PETIT MAL EPILEPSY [None]
  - SUBDURAL HAEMATOMA [None]
  - VOMITING [None]
